FAERS Safety Report 10784231 (Version 1)
Quarter: 2015Q1

REPORT INFORMATION
  Report Type: Spontaneous
  Country: PE (occurrence: PE)
  Receive Date: 20150211
  Receipt Date: 20150211
  Transmission Date: 20150721
  Serious: Yes (Other)
  Sender: FDA-Public Use
  Company Number: PE-MERCK-1502PER003083

PATIENT
  Age: 2 Year
  Sex: Male

DRUGS (1)
  1. NASONEX [Suspect]
     Active Substance: MOMETASONE FUROATE
     Dosage: UNK
     Dates: start: 20141125, end: 20150118

REACTIONS (1)
  - Encephalitis viral [Unknown]

NARRATIVE: CASE EVENT DATE: 20150117
